FAERS Safety Report 4695590-8 (Version None)
Quarter: 2005Q2

REPORT INFORMATION
  Report Type: 
  Country: None (occurrence: None)
  Receive Date: 20050524
  Receipt Date: 20050425
  Transmission Date: 20051028
  Serious: Yes (Hospitalization, Disabling)
  Sender: FDA-Public Use
  Company Number: 2005UW06382

PATIENT
  Age: 25304 Day
  Sex: Female

DRUGS (1)
  1. SEROQUEL [Suspect]
     Indication: ANXIETY
     Route: 048

REACTIONS (3)
  - BLOOD BILIRUBIN INCREASED [None]
  - HEPATIC FUNCTION ABNORMAL [None]
  - JAUNDICE [None]
